FAERS Safety Report 16431662 (Version 2)
Quarter: 2019Q2

REPORT INFORMATION
  Report Type: Spontaneous
  Country: US (occurrence: US)
  Receive Date: 20190614
  Receipt Date: 20190626
  Transmission Date: 20190711
  Serious: No
  Sender: FDA-Public Use
  Company Number: US-KRAMERLABS-2019-US-003490

PATIENT
  Age: 65 Year
  Sex: Female
  Weight: 48.99 kg

DRUGS (9)
  1. NIZORAL A-D [Suspect]
     Active Substance: KETOCONAZOLE
     Indication: PSORIASIS
     Dosage: UNK
     Route: 061
     Dates: start: 2016
  2. QUINAPRIL. [Concomitant]
     Active Substance: QUINAPRIL
     Dosage: 5 MG, 1 IN 1 DAY
     Route: 065
  3. EZETIMIBE. [Concomitant]
     Active Substance: EZETIMIBE
     Dosage: 10 MG, 1 IN 1 DAY
     Route: 065
  4. METOPROLOL. [Concomitant]
     Active Substance: METOPROLOL
     Dosage: 12.5 MG, 1 IN 1 DAY
     Route: 065
  5. CLARITIN [Concomitant]
     Active Substance: LORATADINE
     Dosage: DAILY EXCEPT IN SUMMER
     Route: 065
  6. RANITIDINE. [Concomitant]
     Active Substance: RANITIDINE
     Dosage: 150 MG, 1 IN 1 DAY
     Route: 065
  7. FLONASE [Concomitant]
     Active Substance: FLUTICASONE PROPIONATE
     Dosage: DAILY EXCEPT IN SUMMER
     Route: 065
  8. REPATHA [Concomitant]
     Active Substance: EVOLOCUMAB
     Dosage: 140 MG, IN 2 WEEK
     Route: 058
     Dates: start: 201811
  9. DEXILANT [Concomitant]
     Active Substance: DEXLANSOPRAZOLE
     Dosage: V
     Route: 065

REACTIONS (6)
  - Accidental exposure to product [Unknown]
  - Off label use [Unknown]
  - Skin fissures [Not Recovered/Not Resolved]
  - Dental caries [Not Recovered/Not Resolved]
  - Hepatic enzyme increased [Not Recovered/Not Resolved]
  - Product use in unapproved indication [Unknown]

NARRATIVE: CASE EVENT DATE: 201901
